FAERS Safety Report 5118434-9 (Version None)
Quarter: 2006Q4

REPORT INFORMATION
  Report Type: 
  Country: None (occurrence: None)
  Receive Date: 20061002
  Receipt Date: 20060921
  Transmission Date: 20070319
  Serious: Yes (Hospitalization)
  Sender: FDA-Public Use
  Company Number: US-JNJFOC-20060905334

PATIENT
  Sex: Male
  Weight: 104.33 kg

DRUGS (12)
  1. DURAGESIC-100 [Suspect]
     Indication: BACK PAIN
     Route: 062
  2. FENTANYL TRANSDERMAL SYSTEM [Suspect]
     Indication: BACK PAIN
     Route: 062
  3. COZAAR [Concomitant]
     Indication: HYPERTENSION
     Route: 048
  4. ATENOLOL [Concomitant]
     Indication: HYPERTENSION
     Route: 048
  5. ALLOPURINOL [Concomitant]
     Indication: GOUT
     Route: 048
  6. CARDENE SR [Concomitant]
     Indication: ANGINA PECTORIS
     Route: 048
  7. SULFAZINE [Concomitant]
     Indication: CROHN'S DISEASE
     Route: 048
  8. SOMA [Concomitant]
     Indication: MUSCLE SPASMS
     Route: 048
  9. SYNTHROID [Concomitant]
     Route: 048
  10. HYDROCHLOROTHIAZDE TAB [Concomitant]
     Route: 048
  11. DIAZEPAM [Concomitant]
     Indication: MUSCLE SPASMS
     Route: 048
  12. COLACE [Concomitant]
     Indication: CONSTIPATION
     Route: 048

REACTIONS (3)
  - APPLICATION SITE DERMATITIS [None]
  - FAECAL VOMITING [None]
  - THERAPEUTIC RESPONSE DECREASED [None]
